FAERS Safety Report 24315532 (Version 2)
Quarter: 2024Q3

REPORT INFORMATION
  Report Type: Report from Study
  Country: US (occurrence: US)
  Receive Date: 20240913
  Receipt Date: 20240923
  Transmission Date: 20241016
  Serious: Yes (Other)
  Sender: EMD SERONO INC
  Company Number: US-Merck Healthcare KGaA-2024047881

PATIENT
  Age: 52 Year
  Sex: Female

DRUGS (1)
  1. MAVENCLAD [Suspect]
     Active Substance: CLADRIBINE
     Indication: Multiple sclerosis
     Dosage: YEAR ONE MONTH ONE THERAPY
     Route: 048
     Dates: start: 20240903

REACTIONS (7)
  - Arthralgia [Unknown]
  - Rotator cuff syndrome [Unknown]
  - Fatigue [Unknown]
  - Constipation [Unknown]
  - Feeling hot [Unknown]
  - Hot flush [Unknown]
  - Nausea [Unknown]
